FAERS Safety Report 21853874 (Version 3)
Quarter: 2023Q4

REPORT INFORMATION
  Report Type: Report from Study
  Country: US (occurrence: US)
  Receive Date: 20230112
  Receipt Date: 20231115
  Transmission Date: 20240110
  Serious: Yes (Other)
  Sender: FDA-Public Use
  Company Number: US-ABBVIE-4235733

PATIENT
  Age: 35 Year
  Sex: Female

DRUGS (1)
  1. HUMIRA [Suspect]
     Active Substance: ADALIMUMAB
     Indication: Rheumatoid arthritis
     Dosage: FORM STRENGTH: 40 MG, CITRATE FREE
     Route: 058
     Dates: start: 20120901

REACTIONS (20)
  - Intervertebral disc protrusion [Recovered/Resolved]
  - Thyroid cancer [Recovered/Resolved]
  - Influenza [Recovered/Resolved]
  - Upper respiratory tract infection [Recovered/Resolved]
  - Nasopharyngitis [Recovered/Resolved]
  - COVID-19 [Recovered/Resolved with Sequelae]
  - Injection site pain [Recovered/Resolved]
  - Stress [Recovering/Resolving]
  - Viral infection [Recovered/Resolved]
  - Joint swelling [Recovered/Resolved]
  - Pharyngitis streptococcal [Recovering/Resolving]
  - Arthralgia [Recovered/Resolved]
  - Cardiac disorder [Recovered/Resolved with Sequelae]
  - Blood pressure abnormal [Recovered/Resolved with Sequelae]
  - Streptococcal infection [Recovered/Resolved]
  - COVID-19 [Recovering/Resolving]
  - Anxiety [Recovering/Resolving]
  - Depression [Recovering/Resolving]
  - Upper respiratory tract infection [Recovering/Resolving]
  - Back pain [Unknown]

NARRATIVE: CASE EVENT DATE: 20160501
